FAERS Safety Report 5484586-4 (Version None)
Quarter: 2007Q4

REPORT INFORMATION
  Report Type: 
  Country: None (occurrence: None)
  Receive Date: 20071012
  Receipt Date: 20071001
  Transmission Date: 20080405
  Serious: Yes (Other)
  Sender: FDA-Public Use
  Company Number: US-PFIZER INC-2007083225

PATIENT
  Sex: Female
  Weight: 103 kg

DRUGS (14)
  1. CHANTIX [Suspect]
     Indication: SMOKING CESSATION THERAPY
     Dates: start: 20070709, end: 20070901
  2. PREDNISONE [Interacting]
     Indication: FACIAL PALSY
  3. DOXYCYCLINE [Interacting]
     Indication: FACIAL PALSY
  4. NITROGLYCERIN [Concomitant]
  5. LISINOPRIL [Concomitant]
  6. DICYCLOMINE [Concomitant]
  7. DIPHENOXYLATE [Concomitant]
  8. LOPERAMIDE HCL [Concomitant]
  9. ACTOS [Concomitant]
  10. ZYRTEC [Concomitant]
  11. AMOXICILLIN [Concomitant]
  12. NASONEX [Concomitant]
  13. PREVACID [Concomitant]
  14. LORTAB [Concomitant]

REACTIONS (7)
  - ABNORMAL DREAMS [None]
  - DRUG INTERACTION [None]
  - FACIAL PALSY [None]
  - FATIGUE [None]
  - HERNIA REPAIR [None]
  - NAUSEA [None]
  - VOMITING [None]
